FAERS Safety Report 16062817 (Version 1)
Quarter: 2019Q1

REPORT INFORMATION
  Report Type: Spontaneous
  Country: JP (occurrence: JP)
  Receive Date: 20190312
  Receipt Date: 20190312
  Transmission Date: 20190418
  Serious: Yes (Life-Threatening, Hospitalization)
  Sender: FDA-Public Use
  Company Number: JP-BIOCRYST PHARMACEUTICALS, INC.-2019BCR00029

PATIENT
  Age: 64 Year
  Sex: Male

DRUGS (10)
  1. SANGLOPOR [Concomitant]
     Active Substance: HUMAN IMMUNOGLOBULIN G
     Indication: INFECTION
     Dosage: 2500 MG, 1X/DAY
     Dates: start: 20190108, end: 20190109
  2. THYRADIN [Concomitant]
     Active Substance: LEVOTHYROXINE
     Dosage: 75 MG, 1X/DAY
  3. METHYLPREDNISOLONE. [Concomitant]
     Active Substance: METHYLPREDNISOLONE
     Dosage: 25 UNK
     Dates: start: 20190109
  4. TAKEPRON [Concomitant]
     Active Substance: LANSOPRAZOLE
     Dosage: UNK
     Dates: start: 20190108
  5. MEROPENEM. [Concomitant]
     Active Substance: MEROPENEM
     Indication: ENTERITIS INFECTIOUS
     Dosage: 3 G, 1X/DAY
     Dates: start: 20190107
  6. MEROPENEM. [Concomitant]
     Active Substance: MEROPENEM
     Indication: SEPSIS
  7. METHYLPREDNISOLONE. [Concomitant]
     Active Substance: METHYLPREDNISOLONE
     Indication: SECONDARY HYPOTHYROIDISM
     Dosage: 125 MG, 1X/DAY
     Dates: start: 20190108
  8. SOLU-CORTEF [Concomitant]
     Active Substance: HYDROCORTISONE SODIUM SUCCINATE
     Dosage: UNK
     Dates: start: 20190108
  9. RAPIACTA [Suspect]
     Active Substance: PERAMIVIR
     Indication: INFLUENZA
     Dosage: 100 MG, 1X/DAY
     Route: 042
     Dates: start: 20190109, end: 20190109
  10. CORTRIL [Concomitant]
     Active Substance: HYDROCORTISONE
     Indication: HYPOPITUITARISM
     Dosage: UNK
     Dates: start: 20190108

REACTIONS (2)
  - Anaphylactic shock [Recovered/Resolved]
  - Acute respiratory failure [Recovered/Resolved]

NARRATIVE: CASE EVENT DATE: 20190109
